FAERS Safety Report 6665917-6 (Version None)
Quarter: 2010Q2

REPORT INFORMATION
  Report Type: 
  Country: None (occurrence: None)
  Receive Date: 20100402
  Receipt Date: 20100323
  Transmission Date: 20101027
  Serious: Yes (Hospitalization)
  Sender: FDA-Public Use
  Company Number: US-ROCHE-694588

PATIENT
  Sex: Male
  Weight: 60 kg

DRUGS (8)
  1. CAPECITABINE [Suspect]
     Route: 065
     Dates: start: 20091111, end: 20091119
  2. CAPECITABINE [Suspect]
     Dosage: REDUCED DOSE
     Route: 065
  3. PANITUMUMAB [Suspect]
     Route: 065
     Dates: start: 20091110
  4. OXALIPLATIN [Suspect]
     Route: 065
     Dates: start: 20091110, end: 20091110
  5. EXCIPIAL U LIPOLOTIO [Concomitant]
  6. ZOFRAN [Concomitant]
  7. LYRICA [Concomitant]
  8. OPTIDERM [Concomitant]

REACTIONS (1)
  - GENERAL PHYSICAL HEALTH DETERIORATION [None]
